FAERS Safety Report 7368648-2 (Version None)
Quarter: 2011Q1

REPORT INFORMATION
  Report Type: 
  Country: None (occurrence: None)
  Receive Date: 20110321
  Receipt Date: 20110321
  Transmission Date: 20110831
  Serious: Yes (Other)
  Sender: FDA-Public Use
  Company Number: None

PATIENT
  Age: 93 Year
  Sex: Female
  Weight: 58.6 kg

DRUGS (1)
  1. TPN [Suspect]
     Indication: MALNUTRITION
     Dosage: 1 BAG DAILY IV
     Route: 042
     Dates: start: 20110305, end: 20110306

REACTIONS (2)
  - SERRATIA TEST POSITIVE [None]
  - PRODUCT CONTAMINATION MICROBIAL [None]
